FAERS Safety Report 19881088 (Version 2)
Quarter: 2021Q4

REPORT INFORMATION
  Report Type: Spontaneous
  Country: FR (occurrence: FR)
  Receive Date: 20210924
  Receipt Date: 20211019
  Transmission Date: 20220303
  Serious: Yes (Hospitalization, Other)
  Sender: FDA-Public Use
  Company Number: None

PATIENT
  Age: 77 Year
  Sex: Female

DRUGS (8)
  1. TRAMADOL [Suspect]
     Active Substance: TRAMADOL
     Indication: Pain
     Dosage: 50MILLIGRAM
     Route: 048
     Dates: start: 20210708, end: 20210805
  2. FENTANYL [Suspect]
     Active Substance: FENTANYL
     Indication: Oedema
     Dosage: 12MICROGRAM
     Route: 062
     Dates: start: 20210730
  3. VALACYCLOVIR HYDROCHLORIDE [Suspect]
     Active Substance: VALACYCLOVIR HYDROCHLORIDE
     Indication: Anti-infective therapy
     Dosage: 1GRAM
     Route: 048
     Dates: start: 20210717
  4. DEXAMETHASONE [Suspect]
     Active Substance: DEXAMETHASONE
     Indication: Plasma cell myeloma
     Dosage: 9.5MILLIGRAM
     Route: 048
     Dates: start: 20210705, end: 20210810
  5. DARATUMUMAB [Suspect]
     Active Substance: DARATUMUMAB
     Indication: Plasma cell myeloma
     Dosage: 1800MILLIGRAM
     Route: 058
     Dates: start: 20210705, end: 20210810
  6. FUROSEMIDE [Suspect]
     Active Substance: FUROSEMIDE
     Indication: Oedema
     Dosage: 40MILLIGRAM
     Route: 048
     Dates: start: 202107
  7. ERYTHROPOIETIN [Suspect]
     Active Substance: ERYTHROPOIETIN
     Indication: Anaemia
     Dosage: 1DOSAGEFORM?BINOCRIT 20 000 UI/0,5 ML,
     Route: 058
     Dates: start: 20210705, end: 20210805
  8. VELCADE [Suspect]
     Active Substance: BORTEZOMIB
     Indication: Plasma cell myeloma
     Dosage: 14MILLIGRAM
     Route: 058
     Dates: start: 20210705, end: 20210810

REACTIONS (2)
  - Atrial fibrillation [Not Recovered/Not Resolved]
  - Ejection fraction decreased [Not Recovered/Not Resolved]

NARRATIVE: CASE EVENT DATE: 20210802
